FAERS Safety Report 17828001 (Version 5)
Quarter: 2020Q2

REPORT INFORMATION
  Report Type: Report from Study
  Country: CA (occurrence: CA)
  Receive Date: 20200527
  Receipt Date: 20200628
  Transmission Date: 20200714
  Serious: Yes (Hospitalization, Other)
  Sender: FDA-Public Use
  Company Number: PHHY2018CA003233

PATIENT
  Age: 57 Year
  Sex: Male

DRUGS (21)
  1. AMIODARONE [Suspect]
     Active Substance: AMIODARONE
     Dosage: UNK
     Route: 065
  2. ABILIFY [Concomitant]
     Active Substance: ARIPIPRAZOLE
     Indication: PRODUCT USED FOR UNKNOWN INDICATION
     Dosage: 15 MG, QHS
     Route: 048
     Dates: start: 20180829
  3. CIPRALEX [Concomitant]
     Active Substance: ESCITALOPRAM OXALATE
     Indication: PRODUCT USED FOR UNKNOWN INDICATION
     Dosage: 20 MG, QD
     Route: 048
  4. METFORMIN [Concomitant]
     Active Substance: METFORMIN HYDROCHLORIDE
     Indication: PRODUCT USED FOR UNKNOWN INDICATION
     Dosage: 2000 MG
     Route: 048
  5. ENTRESTO [Suspect]
     Active Substance: SACUBITRIL\VALSARTAN
     Indication: CARDIAC FAILURE
     Dosage: 2 DF (24 MG SACUBITRIL/26 MG VALSARTAN), QD
     Route: 048
     Dates: start: 20170821, end: 20190708
  6. ENTRESTO [Suspect]
     Active Substance: SACUBITRIL\VALSARTAN
     Dosage: 2 DF (24 MG SACUBITRIL/26 MG VALSARTAN), QD
     Route: 048
     Dates: start: 20191029
  7. DIVALPROEX [Concomitant]
     Active Substance: DIVALPROEX SODIUM
     Indication: SEIZURE
     Dosage: 500 MG, BID
     Route: 048
  8. FUROSEMIDE. [Concomitant]
     Active Substance: FUROSEMIDE
     Indication: PRODUCT USED FOR UNKNOWN INDICATION
     Dosage: 40 MG
     Route: 048
     Dates: start: 20180222
  9. ENTRESTO [Suspect]
     Active Substance: SACUBITRIL\VALSARTAN
     Dosage: 1 DF (93 MG SACUBITRIL/ 107 MG VALSARTAN), BID
     Route: 048
     Dates: start: 20200516, end: 20200521
  10. BISOPROLOL [Concomitant]
     Active Substance: BISOPROLOL
     Indication: PRODUCT USED FOR UNKNOWN INDICATION
     Dosage: 10 MG
     Route: 048
     Dates: start: 20180122
  11. CLONAZEPAM. [Concomitant]
     Active Substance: CLONAZEPAM
     Indication: PRODUCT USED FOR UNKNOWN INDICATION
     Dosage: 2 MG
     Route: 048
  12. ENTRESTO [Suspect]
     Active Substance: SACUBITRIL\VALSARTAN
     Dosage: 1 DF (49 MG SACUBITRIL/51 MG VALSARTAN), QD
     Route: 048
     Dates: start: 20190709, end: 20190728
  13. ENTRESTO [Suspect]
     Active Substance: SACUBITRIL\VALSARTAN
     Dosage: 2 DF (49 MG SACUBITRIL/51 MG VALSARTAN), QD
     Route: 048
     Dates: start: 20190729, end: 20191029
  14. AMIODARONE [Suspect]
     Active Substance: AMIODARONE
     Indication: VENTRICULAR TACHYCARDIA
     Dosage: 800 MG, UNKNOWN
     Route: 048
     Dates: start: 20190524, end: 20200501
  15. ROSUVASTATIN. [Concomitant]
     Active Substance: ROSUVASTATIN
     Indication: PRODUCT USED FOR UNKNOWN INDICATION
     Dosage: 20 MG, UNK
     Route: 048
  16. DIGOXIN. [Concomitant]
     Active Substance: DIGOXIN
     Indication: PRODUCT USED FOR UNKNOWN INDICATION
     Dosage: 0.125 MG
     Route: 048
  17. EPLERENONE. [Concomitant]
     Active Substance: EPLERENONE
     Indication: HYPERTENSION
     Dosage: 25 MG, QD
     Route: 048
  18. ASA [Concomitant]
     Active Substance: ASPIRIN
     Indication: PRODUCT USED FOR UNKNOWN INDICATION
     Dosage: 81 MG
     Route: 048
  19. AMIODARONE [Suspect]
     Active Substance: AMIODARONE
     Indication: HYPERTHYROIDISM
     Dosage: 400 MG, QD
     Route: 048
     Dates: start: 20191120
  20. ESCITALOPRAM [Concomitant]
     Active Substance: ESCITALOPRAM OXALATE
     Indication: PRODUCT USED FOR UNKNOWN INDICATION
     Dosage: 15 MG, QD
     Route: 048
     Dates: start: 20190829
  21. ARIPIPRAZOLE. [Concomitant]
     Active Substance: ARIPIPRAZOLE
     Indication: PRODUCT USED FOR UNKNOWN INDICATION
     Dosage: 20 MG, QD
     Route: 048
     Dates: start: 20190530

REACTIONS (22)
  - Hyperthyroidism [Unknown]
  - Hypothyroidism [Unknown]
  - Chest pain [Unknown]
  - Ventricular tachycardia [Not Recovered/Not Resolved]
  - Hypokalaemia [Recovered/Resolved]
  - Presyncope [Recovered/Resolved]
  - Shock [Recovered/Resolved]
  - Concussion [Recovering/Resolving]
  - Blood creatinine increased [Recovering/Resolving]
  - Ventricular tachycardia [Recovered/Resolved]
  - Ventricular tachycardia [Recovered/Resolved]
  - Facial bones fracture [Recovered/Resolved]
  - Hallucination, auditory [Unknown]
  - Syncope [Recovered/Resolved]
  - Renal impairment [Recovering/Resolving]
  - Dyspnoea [Unknown]
  - Fall [Unknown]
  - Skin laceration [Recovered/Resolved]
  - Delusion [Recovering/Resolving]
  - Dizziness [Unknown]
  - Fatigue [Unknown]
  - Inappropriate schedule of product administration [Unknown]

NARRATIVE: CASE EVENT DATE: 20171230
